FAERS Safety Report 17261088 (Version 1)
Quarter: 2020Q1

REPORT INFORMATION
  Report Type: Spontaneous
  Country: US (occurrence: US)
  Receive Date: 20200113
  Receipt Date: 20200113
  Transmission Date: 20200409
  Serious: Yes (Other)
  Sender: FDA-Public Use
  Company Number: US-GLAXOSMITHKLINE-US2020AMR002984

PATIENT

DRUGS (1)
  1. BUPROPION HCL PROLONGED-RELEASE TABLET [Suspect]
     Active Substance: BUPROPION HYDROCHLORIDE
     Indication: PRODUCT USED FOR UNKNOWN INDICATION
     Dosage: UNK
     Route: 065
     Dates: start: 2019

REACTIONS (6)
  - Headache [Unknown]
  - Adverse drug reaction [Unknown]
  - Amnesia [Unknown]
  - Seizure [Unknown]
  - Tongue injury [Unknown]
  - Memory impairment [Unknown]

NARRATIVE: CASE EVENT DATE: 2019
